FAERS Safety Report 11639991 (Version 2)
Quarter: 2015Q4

REPORT INFORMATION
  Report Type: Spontaneous
  Country: KR (occurrence: KR)
  Receive Date: 20151019
  Receipt Date: 20151130
  Transmission Date: 20160304
  Serious: Yes (Death, Other)
  Sender: FDA-Public Use
  Company Number: KR-ASTELLAS-2015US036871

PATIENT
  Age: 86 Year
  Sex: Male

DRUGS (2)
  1. DOCETAXEL. [Concomitant]
     Active Substance: DOCETAXEL
     Indication: PRODUCT USED FOR UNKNOWN INDICATION
     Dosage: UNK UNK, UNKNOWN FREQ.
     Route: 065
  2. XTANDI [Suspect]
     Active Substance: ENZALUTAMIDE
     Indication: PROSTATE CANCER
     Dosage: 160 MG DAILY, UNKNOWN FREQ.
     Route: 048
     Dates: start: 201506

REACTIONS (4)
  - Mental disorder [Unknown]
  - Eating disorder [Unknown]
  - Death [Fatal]
  - Listless [Unknown]

NARRATIVE: CASE EVENT DATE: 201508
